FAERS Safety Report 5281564-5 (Version None)
Quarter: 2007Q1

REPORT INFORMATION
  Report Type: 
  Country: None (occurrence: None)
  Receive Date: 20070330
  Receipt Date: 20070327
  Transmission Date: 20070707
  Serious: Yes (Hospitalization, Disabling)
  Sender: FDA-Public Use
  Company Number: US-BRISTOL-MYERS SQUIBB COMPANY-13728803

PATIENT
  Sex: Male

DRUGS (1)
  1. ABILIFY [Suspect]
     Indication: SCHIZOPHRENIA
     Dates: start: 20040419

REACTIONS (10)
  - BALANCE DISORDER [None]
  - BLOOD PRESSURE INCREASED [None]
  - DISTURBANCE IN ATTENTION [None]
  - DYSARTHRIA [None]
  - DYSPHAGIA [None]
  - ENCEPHALOPATHY [None]
  - FATIGUE [None]
  - INCONTINENCE [None]
  - PNEUMONIA ASPIRATION [None]
  - TEMPERATURE REGULATION DISORDER [None]
